FAERS Safety Report 8956605 (Version 2)
Quarter: 2013Q4

REPORT INFORMATION
  Report Type: Spontaneous
  Country: JP (occurrence: JP)
  Receive Date: 20121210
  Receipt Date: 20131218
  Transmission Date: 20140711
  Serious: Yes (Hospitalization)
  Sender: FDA-Public Use
  Company Number: JP-JNJFOC-20121100103

PATIENT
  Age: 36 Year
  Sex: Male
  Weight: 220 kg

DRUGS (7)
  1. REMICADE [Suspect]
     Indication: PSORIASIS
     Dosage: THIRD DOSE OF INFLIXIMAB
     Route: 042
  2. REMICADE [Suspect]
     Indication: PSORIASIS
     Dosage: SECOND DOSE OF INFLIXIMAB
     Route: 042
     Dates: start: 20110914
  3. REMICADE [Suspect]
     Indication: PSORIASIS
     Dosage: FIFTH DOSE
     Route: 042
     Dates: start: 20120116
  4. REMICADE [Suspect]
     Indication: PSORIASIS
     Route: 042
     Dates: start: 20110831
  5. MUCODYNE [Concomitant]
     Indication: ASTHMA
     Route: 048
     Dates: start: 20120112, end: 20120222
  6. THEOLONG [Concomitant]
     Indication: ASTHMA
     Route: 048
     Dates: start: 20120112, end: 20120415
  7. EPADEL [Concomitant]
     Indication: HYPERLIPIDAEMIA
     Route: 048
     Dates: start: 20120112, end: 20120222

REACTIONS (3)
  - Pneumonia bacterial [Recovered/Resolved]
  - Asthma [Unknown]
  - Pneumonia [Recovered/Resolved]
